FAERS Safety Report 4281107-9 (Version None)
Quarter: 2004Q1

REPORT INFORMATION
  Report Type: 
  Country: None (occurrence: None)
  Receive Date: 20040129
  Receipt Date: 20040120
  Transmission Date: 20041129
  Serious: Yes (Hospitalization)
  Sender: FDA-Public Use
  Company Number: FR-BRISTOL-MYERS SQUIBB COMPANY-12482345

PATIENT
  Age: 56 Year
  Sex: Male
  Weight: 56 kg

DRUGS (6)
  1. VIDEX [Suspect]
     Indication: ACQUIRED IMMUNODEFICIENCY SYNDROME
     Route: 048
     Dates: start: 20031022
  2. COMBIVIR [Suspect]
     Indication: ACQUIRED IMMUNODEFICIENCY SYNDROME
     Route: 048
     Dates: start: 20031022
  3. FUZEON [Suspect]
     Dates: start: 20031022
  4. KALETRA [Suspect]
     Indication: ACQUIRED IMMUNODEFICIENCY SYNDROME
     Route: 048
     Dates: start: 20031022
  5. VIREAD [Suspect]
     Indication: ACQUIRED IMMUNODEFICIENCY SYNDROME
     Route: 048
     Dates: start: 20031022
  6. BACTRIM [Suspect]
     Route: 048
     Dates: start: 20031022

REACTIONS (1)
  - PNEUMONIA PNEUMOCOCCAL [None]
